FAERS Safety Report 13734853 (Version 2)
Quarter: 2017Q3

REPORT INFORMATION
  Report Type: Report from Study
  Country: None (occurrence: US)
  Receive Date: 20170710
  Receipt Date: 20170714
  Transmission Date: 20171127
  Serious: Yes (Hospitalization, Other)
  Sender: FDA-Public Use
  Company Number: US-ABBVIE-17K-163-2030736-00

PATIENT
  Age: 25 Year
  Sex: Male

DRUGS (5)
  1. HUMIRA [Suspect]
     Active Substance: ADALIMUMAB
     Indication: COLITIS ULCERATIVE
     Dosage: LOADING DOSE
     Route: 058
     Dates: start: 20170223, end: 20170223
  2. HUMIRA [Suspect]
     Active Substance: ADALIMUMAB
     Dosage: 2 WEEKS AFTER 80MG
     Route: 058
     Dates: start: 201703
  3. IRON [Concomitant]
     Active Substance: IRON
     Indication: PRODUCT USED FOR UNKNOWN INDICATION
  4. HUMIRA [Suspect]
     Active Substance: ADALIMUMAB
     Indication: CROHN^S DISEASE
     Dosage: LOADING DOSE, 2 WEEKS AFTER 160 MG
     Route: 058
     Dates: start: 201703, end: 201703
  5. MERCAPTOPURINE. [Concomitant]
     Active Substance: MERCAPTOPURINE
     Indication: PRODUCT USED FOR UNKNOWN INDICATION

REACTIONS (11)
  - Intestinal obstruction [Recovering/Resolving]
  - Restless legs syndrome [Not Recovered/Not Resolved]
  - Appendicitis [Recovered/Resolved]
  - Appendicitis [Recovered/Resolved]
  - Formication [Not Recovered/Not Resolved]
  - Post procedural complication [Recovering/Resolving]
  - Chills [Recovered/Resolved]
  - Anaemia [Recovering/Resolving]
  - Bone pain [Not Recovered/Not Resolved]
  - Infection [Recovered/Resolved]
  - Myalgia [Not Recovered/Not Resolved]

NARRATIVE: CASE EVENT DATE: 2017
